FAERS Safety Report 5209407-6 (Version None)
Quarter: 2006Q4

REPORT INFORMATION
  Report Type: 
  Country: None (occurrence: None)
  Receive Date: 20061101
  Receipt Date: 20060620
  Transmission Date: 20070319
  Serious: No
  Sender: FDA-Public Use
  Company Number: 2006PV016073

PATIENT
  Age: 34 Year
  Sex: Female
  Weight: 65.7716 kg

DRUGS (2)
  1. SYMLIN [Suspect]
     Indication: DIABETES MELLITUS INSULIN-DEPENDENT
     Dosage: 15 MCG; QD; SC
     Route: 058
     Dates: start: 20060619
  2. HUMALOG PUMP [Concomitant]

REACTIONS (2)
  - BLOOD GLUCOSE INCREASED [None]
  - FEELING ABNORMAL [None]
